FAERS Safety Report 6268373-5 (Version None)
Quarter: 2009Q3

REPORT INFORMATION
  Report Type: 
  Country: None (occurrence: None)
  Receive Date: 20090713
  Receipt Date: 20090713
  Transmission Date: 20100115
  Serious: Yes (Hospitalization)
  Sender: FDA-Public Use
  Company Number: None

PATIENT
  Age: 43 Year
  Sex: Female

DRUGS (2)
  1. ZESTORETIC [Suspect]
     Indication: HYPERTENSION
     Dosage: NOT REPORTED DAILY PO
     Route: 048
     Dates: start: 20090625, end: 20090628
  2. HYDROCHLOROTHIAZIDE [Suspect]
     Indication: HYPERTENSION
     Dosage: NOT REPORTED DAILY PO
     Route: 048
     Dates: start: 20090625, end: 20090628

REACTIONS (2)
  - ANGIOEDEMA [None]
  - BLOOD PRESSURE INCREASED [None]
